FAERS Safety Report 7599512-1 (Version None)
Quarter: 2011Q3

REPORT INFORMATION
  Report Type: 
  Country: None (occurrence: None)
  Receive Date: 20110711
  Receipt Date: 20110705
  Transmission Date: 20111222
  Serious: Yes (Other)
  Sender: FDA-Public Use
  Company Number: US-BAYER-2011-058916

PATIENT
  Age: 75 Year
  Sex: Female
  Weight: 67 kg

DRUGS (6)
  1. CITRACAL PETITES [Suspect]
     Dosage: COUNT SIZE 100S
     Route: 048
  2. ASCORBIC ACID [Concomitant]
  3. GINKGO BILOBA [Concomitant]
  4. CENTRUM SILVER [Concomitant]
  5. CALCIUM CARBONATE [Concomitant]
  6. SIMVASTATIN [Concomitant]

REACTIONS (2)
  - CHOKING [None]
  - FOREIGN BODY [None]
